FAERS Safety Report 19293068 (Version 1)
Quarter: 2021Q2

REPORT INFORMATION
  Report Type: Spontaneous
  Country: US (occurrence: US)
  Receive Date: 20210521
  Receipt Date: 20210521
  Transmission Date: 20210717
  Serious: No
  Sender: FDA-Public Use
  Company Number: None

PATIENT
  Sex: Female

DRUGS (2)
  1. GAMMAGARD LIQUID [Suspect]
     Active Substance: HUMAN IMMUNOGLOBULIN G
     Indication: ORTHOSTATIC HYPOTENSION
     Dosage: ?          OTHER DOSE:25GM;  IV DAILY FOR FOR 2 DAYS EVERY 2 WEEKKS?
     Route: 042
     Dates: start: 202103
  2. GAMMAGARD LIQUID [Suspect]
     Active Substance: HUMAN IMMUNOGLOBULIN G
     Indication: ORTHOSTATIC HYPOTENSION
     Dosage: ?          OTHER DOSE:25GM; IV DAILY OR 2 DAYS EVERY 2 WEEKS?
     Route: 042
     Dates: start: 202103

REACTIONS (3)
  - Urticaria [None]
  - Infusion related reaction [None]
  - Rash [None]
